FAERS Safety Report 19183245 (Version 1)
Quarter: 2021Q2

REPORT INFORMATION
  Report Type: Spontaneous
  Country: US (occurrence: US)
  Receive Date: 20210427
  Receipt Date: 20210427
  Transmission Date: 20210717
  Serious: No
  Sender: FDA-Public Use
  Company Number: US-BEIGENE USA INC-BGN-2021-001152

PATIENT

DRUGS (2)
  1. ECHINACEA [Concomitant]
     Active Substance: ECHINACEA, UNSPECIFIED
  2. BRUKINSA [Suspect]
     Active Substance: ZANUBRUTINIB
     Indication: MANTLE CELL LYMPHOMA
     Dosage: UNK
     Dates: start: 20210413

REACTIONS (2)
  - Fatigue [Not Recovered/Not Resolved]
  - Dizziness [Not Recovered/Not Resolved]
